FAERS Safety Report 9306221 (Version 2)
Quarter: 2013Q2

REPORT INFORMATION
  Report Type: Spontaneous
  Country: FR (occurrence: FR)
  Receive Date: 20130523
  Receipt Date: 20130612
  Transmission Date: 20140414
  Serious: Yes (Hospitalization)
  Sender: FDA-Public Use
  Company Number: FR-GLAXOSMITHKLINE-B0893315A

PATIENT
  Age: 68 Year
  Sex: Female
  Weight: 65 kg

DRUGS (5)
  1. TROBALT [Suspect]
     Indication: EPILEPSY
     Route: 048
     Dates: start: 2013
  2. GARDENAL [Concomitant]
     Indication: EPILEPSY
     Dosage: 100MG PER DAY
     Route: 065
  3. DIHYDAN [Concomitant]
     Indication: EPILEPSY
     Dosage: 100MG THREE TIMES PER DAY
     Route: 065
  4. TEGRETOL [Concomitant]
     Indication: EPILEPSY
     Dosage: 400MG THREE TIMES PER DAY
     Route: 065
  5. VIMPAT [Concomitant]
     Indication: EPILEPSY
     Dosage: 350MG PER DAY
     Route: 065
     Dates: end: 2013

REACTIONS (3)
  - Convulsion [Recovering/Resolving]
  - Status epilepticus [Recovering/Resolving]
  - Epilepsy [Recovering/Resolving]
